FAERS Safety Report 19066818 (Version 1)
Quarter: 2021Q1

REPORT INFORMATION
  Report Type: Spontaneous
  Country: US (occurrence: US)
  Receive Date: 20210329
  Receipt Date: 20210329
  Transmission Date: 20210420
  Serious: Yes (Other)
  Sender: FDA-Public Use
  Company Number: US-AUROBINDO-AUR-APL-2021-005696

PATIENT
  Sex: Male
  Weight: 120 kg

DRUGS (3)
  1. SERTRALINE HYDROCHLORIDE TABLETS 25MG [Suspect]
     Active Substance: SERTRALINE HYDROCHLORIDE
     Indication: ANXIETY
     Dosage: 25 MILLIGRAM, ONCE A DAY
     Route: 048
     Dates: start: 20200501
  2. SERTRALINE HYDROCHLORIDE TABLETS 25MG [Suspect]
     Active Substance: SERTRALINE HYDROCHLORIDE
     Dosage: DOSE DECREASED
     Route: 048
  3. OLANZAPINE. [Concomitant]
     Active Substance: OLANZAPINE
     Indication: PRODUCT USED FOR UNKNOWN INDICATION
     Dosage: 2.5 MILLIGRAM
     Route: 065

REACTIONS (5)
  - Diarrhoea [Recovered/Resolved]
  - Haematochezia [Recovered/Resolved]
  - Pruritus [Recovered/Resolved]
  - Rash [Recovered/Resolved]
  - Constipation [Recovered/Resolved]
